FAERS Safety Report 5382472-1 (Version None)
Quarter: 2007Q3

REPORT INFORMATION
  Report Type: 
  Country: None (occurrence: None)
  Receive Date: 20070703
  Receipt Date: 20070412
  Transmission Date: 20080115
  Serious: Yes (Other)
  Sender: FDA-Public Use
  Company Number: US-JNJFOC-20070402726

PATIENT
  Age: 53 Year
  Sex: Male
  Weight: 79.3795 kg

DRUGS (3)
  1. MOTRIN IB [Suspect]
     Indication: TOOTHACHE
     Dosage: 800 MG, 3 IN 1 DAY
     Dates: start: 20070201
  2. ASPIRIN [Suspect]
     Indication: TOOTHACHE
     Dosage: 325-650MG
     Dates: start: 20070201
  3. PAXIL [Concomitant]

REACTIONS (1)
  - HAEMATOCHEZIA [None]
